FAERS Safety Report 4916412-3 (Version None)
Quarter: 2006Q1

REPORT INFORMATION
  Report Type: 
  Country: None (occurrence: None)
  Receive Date: 20060220
  Receipt Date: 20060210
  Transmission Date: 20060701
  Serious: Yes (Other)
  Sender: FDA-Public Use
  Company Number: PHBS2006JP02399

PATIENT
  Age: 60 Year
  Sex: Male

DRUGS (1)
  1. LAMISIL [Suspect]
     Route: 048
     Dates: start: 20050101

REACTIONS (2)
  - BLOOD IRON DECREASED [None]
  - IRON DEFICIENCY ANAEMIA [None]
